FAERS Safety Report 5537425-7 (Version None)
Quarter: 2007Q4

REPORT INFORMATION
  Report Type: 
  Country: None (occurrence: None)
  Receive Date: 20071207
  Receipt Date: 20071126
  Transmission Date: 20080405
  Serious: Yes (Death, Hospitalization)
  Sender: FDA-Public Use
  Company Number: BR-GILEAD-2007-0012946

PATIENT
  Age: 29 Year
  Sex: Male
  Weight: 65 kg

DRUGS (6)
  1. EMTRICITABINE [Suspect]
     Indication: HIV INFECTION
     Route: 048
     Dates: start: 20070413, end: 20070721
  2. DDI [Concomitant]
     Indication: HIV INFECTION
     Route: 048
     Dates: start: 20070413, end: 20070721
  3. ATAZANAVIR [Concomitant]
     Indication: HIV INFECTION
     Route: 048
     Dates: start: 20070413, end: 20070721
  4. SULFAMETHOXAZOLE AND TRIMETHOTRIM [Concomitant]
  5. AZITHROMYCIN [Concomitant]
  6. MULTI-VITAMIN [Concomitant]

REACTIONS (1)
  - HAEMORRHAGE INTRACRANIAL [None]
